FAERS Safety Report 13758751 (Version 2)
Quarter: 2017Q3

REPORT INFORMATION
  Report Type: Report from Study
  Country: None (occurrence: CA)
  Receive Date: 20170717
  Receipt Date: 20170902
  Transmission Date: 20171127
  Serious: Yes (Hospitalization, Other)
  Sender: FDA-Public Use
  Company Number: CA-ABBVIE-17K-028-2039481-00

PATIENT
  Age: 11 Year
  Sex: Male
  Weight: 27.9 kg

DRUGS (25)
  1. METHOTREXATE. [Suspect]
     Active Substance: METHOTREXATE
     Indication: PRODUCT USED FOR UNKNOWN INDICATION
     Route: 065
  2. HYDROCHLOROTHIAZIDE. [Concomitant]
     Active Substance: HYDROCHLOROTHIAZIDE
     Indication: PRODUCT USED FOR UNKNOWN INDICATION
     Route: 048
     Dates: end: 2017
  3. LANSOPRAZOLE. [Concomitant]
     Active Substance: LANSOPRAZOLE
     Indication: PRODUCT USED FOR UNKNOWN INDICATION
     Route: 048
  4. CEFPROZIL. [Concomitant]
     Active Substance: CEFPROZIL
     Indication: LYMPHADENITIS
     Dosage: DIVIDED IN TWO DOSES DAILY
     Route: 048
  5. CEFTRIAXONE. [Concomitant]
     Active Substance: CEFTRIAXONE
     Indication: OTITIS MEDIA
     Route: 042
  6. ATIVAN [Concomitant]
     Active Substance: LORAZEPAM
     Indication: ANXIETY
     Dates: start: 201707, end: 201707
  7. PREDNISONE. [Suspect]
     Active Substance: PREDNISONE
     Route: 065
  8. PREDNISONE. [Suspect]
     Active Substance: PREDNISONE
     Route: 065
     Dates: end: 2017
  9. CHLORHEXIDINE 0.12% [Concomitant]
     Indication: PRODUCT USED FOR UNKNOWN INDICATION
     Route: 061
     Dates: end: 2017
  10. IMURAN [Suspect]
     Active Substance: AZATHIOPRINE
     Indication: CROHN^S DISEASE
     Route: 048
     Dates: start: 20161014, end: 20170710
  11. CEFPROZIL. [Concomitant]
     Active Substance: CEFPROZIL
     Indication: OTITIS MEDIA
  12. ENALAPRIL [Concomitant]
     Active Substance: ENALAPRIL
     Indication: PRODUCT USED FOR UNKNOWN INDICATION
     Route: 048
     Dates: end: 2017
  13. HUMIRA [Suspect]
     Active Substance: ADALIMUMAB
     Indication: CROHN^S DISEASE
     Route: 058
     Dates: start: 20170501, end: 20170627
  14. PREDNISONE. [Suspect]
     Active Substance: PREDNISONE
     Indication: PRODUCT USED FOR UNKNOWN INDICATION
     Route: 065
  15. PREDNISONE. [Suspect]
     Active Substance: PREDNISONE
     Route: 065
  16. ATIVAN [Concomitant]
     Active Substance: LORAZEPAM
     Indication: FEAR OF INJECTION
  17. LACTAID [Concomitant]
     Active Substance: LACTASE
     Indication: PRODUCT USED FOR UNKNOWN INDICATION
     Route: 048
  18. IRON [Suspect]
     Active Substance: IRON
     Indication: PRODUCT USED FOR UNKNOWN INDICATION
     Route: 048
  19. CLOBAZAM [Concomitant]
     Active Substance: CLOBAZAM
     Indication: NERVOUS SYSTEM DISORDER
     Dosage: 1/2 TABLET IN MORNING AND 1 TABLET AT BEDTIME
     Route: 048
  20. K CITRA [Concomitant]
     Indication: PRODUCT USED FOR UNKNOWN INDICATION
     Route: 048
     Dates: end: 2017
  21. SODIUM ACID PHOSPHATE [Concomitant]
     Indication: PRODUCT USED FOR UNKNOWN INDICATION
     Route: 048
  22. PREDNISONE. [Suspect]
     Active Substance: PREDNISONE
     Route: 065
  23. PREDNISONE. [Suspect]
     Active Substance: PREDNISONE
     Route: 065
  24. PREDNISONE. [Suspect]
     Active Substance: PREDNISONE
     Route: 065
  25. VITAMIN D [Concomitant]
     Active Substance: CHOLECALCIFEROL
     Indication: PRODUCT USED FOR UNKNOWN INDICATION
     Dosage: 1000 UNITS/ DROP, LIQUID
     Route: 048

REACTIONS (18)
  - Blood alkaline phosphatase increased [Unknown]
  - Diarrhoea haemorrhagic [Unknown]
  - Blood uric acid increased [Unknown]
  - Blood lactate dehydrogenase increased [Unknown]
  - Clostridium difficile infection [Recovered/Resolved]
  - Oropharyngeal pain [Unknown]
  - Hepatosplenomegaly [Unknown]
  - Pharyngitis [Recovered/Resolved]
  - C-reactive protein increased [Unknown]
  - Drug effect incomplete [Unknown]
  - Splenomegaly [Unknown]
  - Lymphadenitis [Recovered/Resolved]
  - Ear infection [Recovered/Resolved]
  - Lymphoma [Unknown]
  - Condition aggravated [Unknown]
  - Microcytic anaemia [Unknown]
  - Iron deficiency [Unknown]
  - Otitis media acute [Unknown]

NARRATIVE: CASE EVENT DATE: 2017
